FAERS Safety Report 9541751 (Version 1)
Quarter: 2013Q3

REPORT INFORMATION
  Report Type: Spontaneous
  Country: DE (occurrence: None)
  Receive Date: 20130918
  Receipt Date: 20130918
  Transmission Date: 20140515
  Serious: Yes (Other)
  Sender: FDA-Public Use
  Company Number: AUR-APL-2013-07744

PATIENT
  Age: 77 Year
  Sex: Male
  Weight: 73 kg

DRUGS (1)
  1. RISPERIDONE [Suspect]
     Indication: DEPRESSION
     Route: 048
     Dates: start: 201107, end: 201307

REACTIONS (2)
  - Breast cancer male [None]
  - Blood prolactin increased [None]
